FAERS Safety Report 15246431 (Version 1)
Quarter: 2018Q3

REPORT INFORMATION
  Report Type: Report from Study
  Country: US (occurrence: US)
  Receive Date: 20180806
  Receipt Date: 20180806
  Transmission Date: 20181010
  Serious: Yes (Other)
  Sender: FDA-Public Use
  Company Number: US-MYLANLABS-2018M1048432

PATIENT
  Sex: Male

DRUGS (1)
  1. GLATIRAMER [Suspect]
     Active Substance: GLATIRAMER
     Indication: RELAPSING-REMITTING MULTIPLE SCLEROSIS
     Dosage: 40 MG, UNK

REACTIONS (5)
  - Balance disorder [Unknown]
  - Pain in extremity [Unknown]
  - Urticaria [Recovering/Resolving]
  - Multiple sclerosis relapse [Unknown]
  - Muscular weakness [Unknown]
